FAERS Safety Report 5853737-1 (Version None)
Quarter: 2008Q3

REPORT INFORMATION
  Report Type: 
  Country: None (occurrence: None)
  Receive Date: 20080822
  Receipt Date: 20080815
  Transmission Date: 20090109
  Serious: Yes (Other)
  Sender: FDA-Public Use
  Company Number: US-ASTRAZENECA-2008UW16767

PATIENT
  Age: 66 Year
  Sex: Female
  Weight: 108.9 kg

DRUGS (8)
  1. ARIMIDEX [Suspect]
     Indication: BREAST CANCER
     Route: 048
  2. METFORMIN [Concomitant]
  3. ENALAPRIL MALEATE [Concomitant]
  4. ACTOS [Concomitant]
  5. METOPROLOL TARTRATE [Concomitant]
  6. OMEPRAZOLE [Concomitant]
  7. ASPIRIN [Concomitant]
  8. M.V.I. [Concomitant]

REACTIONS (3)
  - ARTHRITIS [None]
  - HIP ARTHROPLASTY [None]
  - TRIGGER FINGER [None]
